FAERS Safety Report 13885461 (Version 2)
Quarter: 2017Q3

REPORT INFORMATION
  Report Type: Report from Study
  Country: US (occurrence: US)
  Receive Date: 20170821
  Receipt Date: 20170927
  Transmission Date: 20171127
  Serious: Yes (Hospitalization)
  Sender: FDA-Public Use
  Company Number: US-GILEAD-2017-0289268

PATIENT
  Age: 73 Year
  Sex: Female

DRUGS (2)
  1. AMBRISENTAN [Suspect]
     Active Substance: AMBRISENTAN
     Indication: PRODUCT USED FOR UNKNOWN INDICATION
     Dosage: 5 MG, QD
     Route: 065
  2. ADCIRCA [Concomitant]
     Active Substance: TADALAFIL

REACTIONS (5)
  - Headache [Unknown]
  - Fluid retention [Unknown]
  - Malaise [Unknown]
  - Dyspnoea [Unknown]
  - Swelling [Unknown]
